FAERS Safety Report 7913552-1 (Version None)
Quarter: 2011Q4

REPORT INFORMATION
  Report Type: 
  Country: None (occurrence: None)
  Receive Date: 20111110
  Receipt Date: 20111103
  Transmission Date: 20120403
  Serious: Yes (Other)
  Sender: FDA-Public Use
  Company Number: AUR-APL-2011-05732

PATIENT
  Age: 74 Year
  Sex: Male
  Weight: 81.63 kg

DRUGS (3)
  1. PAROXETINE HCL [Suspect]
     Indication: PANIC DISORDER
  2. PAROXETINE HCL [Suspect]
     Indication: PANIC ATTACK
     Dosage: 140 MG (140 MG, 1 IN 1 D)
  3. VALIUM [Concomitant]

REACTIONS (5)
  - FEELING JITTERY [None]
  - BACK PAIN [None]
  - PANIC ATTACK [None]
  - DRUG INEFFECTIVE [None]
  - PNEUMONIA [None]
